FAERS Safety Report 10804517 (Version 1)
Quarter: 2015Q1

REPORT INFORMATION
  Report Type: Report from Study
  Country: US (occurrence: US)
  Receive Date: 20150217
  Receipt Date: 20150217
  Transmission Date: 20150721
  Serious: No
  Sender: FDA-Public Use
  Company Number: US-ABBVIE-14K-163-1263681-00

PATIENT
  Age: 60 Year
  Sex: Female

DRUGS (13)
  1. NICOTINE. [Suspect]
     Active Substance: NICOTINE
     Indication: PRODUCT USED FOR UNKNOWN INDICATION
  2. XANAX [Concomitant]
     Active Substance: ALPRAZOLAM
     Indication: CROHN^S DISEASE
     Dosage: THRICE DAILY
  3. PREDNISONE. [Concomitant]
     Active Substance: PREDNISONE
     Indication: CROHN^S DISEASE
  4. PREDNISONE. [Concomitant]
     Active Substance: PREDNISONE
  5. PREDNISONE. [Concomitant]
     Active Substance: PREDNISONE
     Dates: start: 20140714
  6. HUMIRA [Suspect]
     Active Substance: ADALIMUMAB
     Indication: CROHN^S DISEASE
     Dates: start: 20140703, end: 20140703
  7. HUMIRA [Suspect]
     Active Substance: ADALIMUMAB
     Dates: start: 20140726, end: 20140726
  8. TIZANIDINE (TIZANIDINE) [Concomitant]
     Active Substance: TIZANIDINE
     Indication: MUSCLE RELAXANT THERAPY
  9. HUMIRA [Suspect]
     Active Substance: ADALIMUMAB
  10. APRISO [Concomitant]
     Active Substance: MESALAMINE
     Indication: CROHN^S DISEASE
     Dosage: ERO
  11. XANAX [Concomitant]
     Active Substance: ALPRAZOLAM
     Indication: ANXIETY
  12. UNKNOWN CROHN^S MEDICATION [Concomitant]
     Active Substance: UNSPECIFIED INGREDIENT
     Indication: CROHN^S DISEASE
  13. CHANTIX [Concomitant]
     Active Substance: VARENICLINE TARTRATE
     Indication: PRODUCT USED FOR UNKNOWN INDICATION
     Dosage: FOR 3 DAYS
     Dates: start: 20140805

REACTIONS (5)
  - Pyrexia [Recovered/Resolved]
  - Dermatitis contact [Unknown]
  - Injection site pain [Not Recovered/Not Resolved]
  - Fatigue [Not Recovered/Not Resolved]
  - Pharyngitis streptococcal [Recovered/Resolved]

NARRATIVE: CASE EVENT DATE: 2014
